FAERS Safety Report 17515922 (Version 1)
Quarter: 2020Q1

REPORT INFORMATION
  Report Type: Spontaneous
  Country: CA (occurrence: CA)
  Receive Date: 20200309
  Receipt Date: 20200309
  Transmission Date: 20200409
  Serious: Yes (Other)
  Sender: FDA-Public Use
  Company Number: CA-PFIZER INC-2020097985

PATIENT
  Age: 72 Year

DRUGS (1)
  1. GD-GABAPENTIN [Suspect]
     Active Substance: GABAPENTIN
     Dosage: 2400 MG, 1X/DAY

REACTIONS (3)
  - Asthenia [Unknown]
  - Decreased appetite [Unknown]
  - Leukaemia [Unknown]
